FAERS Safety Report 4310491-2 (Version None)
Quarter: 2004Q1

REPORT INFORMATION
  Report Type: 
  Country: None (occurrence: None)
  Receive Date: 20040302
  Receipt Date: 20040217
  Transmission Date: 20041129
  Serious: Yes (Hospitalization)
  Sender: FDA-Public Use
  Company Number: 2004-FF-00107FF

PATIENT
  Age: 44 Year
  Sex: Male

DRUGS (4)
  1. MOBIC [Suspect]
     Indication: MUSCULOSKELETAL PAIN
     Dosage: 7.5 MG
     Route: 048
     Dates: start: 20031229, end: 20031229
  2. RIVOTRIL (TR) [Suspect]
     Indication: MUSCULOSKELETAL PAIN
     Dosage: 10 DROPS
     Route: 048
     Dates: start: 20031229, end: 20031229
  3. AOTAL (ACAMPROSATE) [Concomitant]
  4. ZALDIAR (TA) [Concomitant]

REACTIONS (3)
  - ALCOHOL USE [None]
  - COMA [None]
  - RESPIRATORY DISTRESS [None]
